FAERS Safety Report 7406967-1 (Version None)
Quarter: 2011Q2

REPORT INFORMATION
  Report Type: 
  Country: None (occurrence: None)
  Receive Date: 20110411
  Receipt Date: 20110328
  Transmission Date: 20111010
  Serious: Yes (Congenital Anomaly, Other)
  Sender: FDA-Public Use
  Company Number: FR-ELI_LILLY_AND_COMPANY-FR201103007940

PATIENT

DRUGS (2)
  1. PROZAC [Suspect]
     Dosage: 0.5 DF, QD
     Route: 064
  2. PROZAC [Suspect]
     Dosage: 0.5 DF, QD
     Route: 064

REACTIONS (7)
  - LIMB MALFORMATION [None]
  - FOETAL MALFORMATION [None]
  - CONGENITAL LARGE INTESTINAL ATRESIA [None]
  - DRUG EXPOSURE DURING PREGNANCY [None]
  - RENAL DYSPLASIA [None]
  - OLIGOHYDRAMNIOS [None]
  - RENAL APLASIA [None]
